FAERS Safety Report 12967512 (Version 20)
Quarter: 2024Q2

REPORT INFORMATION
  Report Type: Other
  Country: DE (occurrence: DE)
  Receive Date: 20161123
  Receipt Date: 20240604
  Transmission Date: 20240715
  Serious: Yes (Other)
  Sender: FDA-Public Use
  Company Number: DE-ROCHE-1856293

PATIENT
  Age: 73 Year
  Sex: Male
  Weight: 93 kg

DRUGS (14)
  1. ESBRIET [Suspect]
     Active Substance: PIRFENIDONE
     Indication: Idiopathic pulmonary fibrosis
     Route: 048
     Dates: start: 20160918
  2. ESBRIET [Suspect]
     Active Substance: PIRFENIDONE
     Route: 048
  3. ESBRIET [Suspect]
     Active Substance: PIRFENIDONE
     Route: 048
     Dates: end: 201709
  4. ESBRIET [Suspect]
     Active Substance: PIRFENIDONE
     Route: 048
     Dates: start: 20171001
  5. ESBRIET [Suspect]
     Active Substance: PIRFENIDONE
     Route: 048
     Dates: end: 20170901
  6. ESBRIET [Suspect]
     Active Substance: PIRFENIDONE
     Route: 048
  7. ESBRIET [Suspect]
     Active Substance: PIRFENIDONE
     Route: 048
     Dates: start: 20190101, end: 20190408
  8. ESBRIET [Suspect]
     Active Substance: PIRFENIDONE
     Route: 048
     Dates: start: 20171001, end: 20190408
  9. ESBRIET [Suspect]
     Active Substance: PIRFENIDONE
     Indication: Idiopathic pulmonary fibrosis
     Route: 048
     Dates: start: 201709, end: 201709
  10. ESBRIET [Suspect]
     Active Substance: PIRFENIDONE
     Route: 048
     Dates: start: 201711, end: 201711
  11. ASPIRIN [Concomitant]
     Active Substance: ASPIRIN
     Dosage: 1 TABLET DAILY
  12. HERZASS [Concomitant]
  13. CANDESARTAN CILEXETIL [Concomitant]
     Active Substance: CANDESARTAN CILEXETIL
     Dosage: 1/2 TABLET DAILY
  14. HYDROCHLOROTHIAZIDE [Concomitant]
     Active Substance: HYDROCHLOROTHIAZIDE
     Dosage: 1/2 TABLET DAILY

REACTIONS (15)
  - Inflammation [Recovering/Resolving]
  - External ear inflammation [Recovering/Resolving]
  - Orchitis noninfective [Recovering/Resolving]
  - Nasal inflammation [Recovering/Resolving]
  - Arthritis infective [Not Recovered/Not Resolved]
  - Productive cough [Recovered/Resolved]
  - Diarrhoea [Recovered/Resolved]
  - Nasopharyngitis [Recovering/Resolving]
  - Fatigue [Recovered/Resolved]
  - Skin reaction [Recovered/Resolved]
  - Erythema [Recovering/Resolving]
  - Scar [Recovering/Resolving]
  - Psoriasis [Recovered/Resolved]
  - Impaired healing [Recovered/Resolved]
  - Rash pruritic [Recovered/Resolved]

NARRATIVE: CASE EVENT DATE: 20160918
